FAERS Safety Report 23452199 (Version 1)
Quarter: 2024Q1

REPORT INFORMATION
  Report Type: Spontaneous
  Country: US (occurrence: US)
  Receive Date: 20240129
  Receipt Date: 20240129
  Transmission Date: 20240410
  Serious: No
  Sender: FDA-Public Use
  Company Number: US-JNJFOC-20240161520

PATIENT
  Age: 11 Year
  Sex: Male

DRUGS (1)
  1. RISPERDAL [Suspect]
     Active Substance: RISPERIDONE
     Indication: Schizophrenia
     Dosage: 1 TABLET BY MOUTH IN AM AND 1 1/2 TABLET DAILY AT BEDTIME.
     Route: 048
     Dates: start: 201601

REACTIONS (1)
  - Weight increased [Unknown]
